FAERS Safety Report 9563968 (Version 1)
Quarter: 2013Q3

REPORT INFORMATION
  Report Type: Spontaneous
  Country: US (occurrence: US)
  Receive Date: 20130928
  Receipt Date: 20130928
  Transmission Date: 20140515
  Serious: No
  Sender: FDA-Public Use
  Company Number: US-BAYER-2013-116903

PATIENT
  Age: 66 Year
  Sex: Female
  Weight: 56.24 kg

DRUGS (6)
  1. ESTRADIOL HEMIHYDRATE (PATCH) [Suspect]
     Dosage: 0.025 MG/D, UNK
     Route: 061
  2. FENOFIBRATE [Concomitant]
     Dosage: 67 MG, QD
     Route: 048
  3. VITAMIN C [ASCORBIC ACID] [Concomitant]
     Dosage: 1 G, QD
     Route: 048
     Dates: start: 1993
  4. FISH OIL [Concomitant]
     Dosage: 1 G, QD
     Route: 048
     Dates: start: 1993
  5. GLUCOSAMINE/MSM [Concomitant]
     Dosage: 1500 MG, QD
     Route: 048
     Dates: start: 1993
  6. CALCIUM D3 [CALCIUM CARBONATE,COLECALCIFEROL] [Concomitant]
     Dosage: 600 MG, QD
     Route: 048
     Dates: start: 1993

REACTIONS (3)
  - Hot flush [None]
  - Alopecia [None]
  - Weight loss poor [None]
